FAERS Safety Report 5179904-0 (Version None)
Quarter: 2006Q4

REPORT INFORMATION
  Report Type: 
  Country: None (occurrence: None)
  Receive Date: 20061211
  Receipt Date: 20061127
  Transmission Date: 20070319
  Serious: Yes (Hospitalization, Other)
  Sender: FDA-Public Use
  Company Number: 2006014180

PATIENT
  Sex: Female

DRUGS (2)
  1. CELEBREX [Suspect]
     Dosage: ORAL
     Route: 048
     Dates: start: 20020101, end: 20031201
  2. VIOXX [Suspect]
     Dosage: ORAL
     Route: 048
     Dates: start: 20020101, end: 20031201

REACTIONS (3)
  - CARDIAC DISORDER [None]
  - EYE DISORDER [None]
  - INJURY [None]
